FAERS Safety Report 4832601-0 (Version None)
Quarter: 2005Q4

REPORT INFORMATION
  Report Type: 
  Country: None (occurrence: None)
  Receive Date: 20051117
  Receipt Date: 20051109
  Transmission Date: 20060501
  Serious: Yes (Hospitalization, Other)
  Sender: FDA-Public Use
  Company Number: TPA2005A01086

PATIENT
  Sex: Female

DRUGS (3)
  1. ACTOS [Suspect]
     Dosage: PER ORAL
     Route: 048
  2. EXENATIDE (ALL OTHER THERAPEUTIC PRODUCTS) (10 MICROGRAM) [Suspect]
     Dosage: 10 MCG, 2 IN 1 D
  3. GLUCOPHAGE [Concomitant]

REACTIONS (4)
  - CHOLECYSTITIS ACUTE [None]
  - DISEASE RECURRENCE [None]
  - GLYCOSYLATED HAEMOGLOBIN INCREASED [None]
  - WEIGHT DECREASED [None]
